FAERS Safety Report 12373536 (Version 1)
Quarter: 2016Q2

REPORT INFORMATION
  Report Type: Report from Study
  Country: BR (occurrence: BR)
  Receive Date: 20160516
  Receipt Date: 20160516
  Transmission Date: 20160815
  Serious: Yes (Hospitalization, Other)
  Sender: FDA-Public Use
  Company Number: PHHY2016BR065119

PATIENT
  Sex: Male
  Weight: 86.5 kg

DRUGS (1)
  1. DESFERAL [Suspect]
     Active Substance: DEFEROXAMINE MESYLATE
     Indication: SPHEROCYTIC ANAEMIA
     Dosage: UNK
     Route: 065
     Dates: start: 2001

REACTIONS (5)
  - Weight decreased [Unknown]
  - Cardiac failure congestive [Unknown]
  - Dizziness [Unknown]
  - Dehydration [Unknown]
  - Diabetes mellitus [Unknown]

NARRATIVE: CASE EVENT DATE: 2015
